FAERS Safety Report 24016772 (Version 2)
Quarter: 2024Q3

REPORT INFORMATION
  Report Type: Spontaneous
  Country: MX (occurrence: MX)
  Receive Date: 20240626
  Receipt Date: 20240709
  Transmission Date: 20241017
  Serious: Yes (Other)
  Sender: BAYER
  Company Number: MX-BAYER-2024A092112

PATIENT
  Age: 6 Year
  Sex: Male

DRUGS (1)
  1. LAROTRECTINIB [Suspect]
     Active Substance: LAROTRECTINIB
     Indication: Glioblastoma multiforme
     Dosage: 5 ML, BID
     Route: 048
     Dates: start: 20230911, end: 20240330

REACTIONS (1)
  - Glioblastoma multiforme [Not Recovered/Not Resolved]

NARRATIVE: CASE EVENT DATE: 20240301
